FAERS Safety Report 5754864-X (Version None)
Quarter: 2008Q2

REPORT INFORMATION
  Report Type: 
  Country: None (occurrence: None)
  Receive Date: 20080527
  Receipt Date: 20080507
  Transmission Date: 20081010
  Serious: Yes (Death)
  Sender: FDA-Public Use
  Company Number: 2008AL004001

PATIENT
  Age: 83 Year
  Sex: Female
  Weight: 38.5557 kg

DRUGS (1)
  1. DIGOXIN [Suspect]
     Dates: start: 20070101

REACTIONS (2)
  - CARDIAC DISORDER [None]
  - HEART RATE INCREASED [None]
